FAERS Safety Report 7655045-5 (Version None)
Quarter: 2011Q3

REPORT INFORMATION
  Report Type: 
  Country: None (occurrence: None)
  Receive Date: 20110728
  Receipt Date: 20110718
  Transmission Date: 20111222
  Serious: Yes (Hospitalization)
  Sender: FDA-Public Use
  Company Number: 11-428

PATIENT
  Age: 37 Year
  Sex: Female

DRUGS (8)
  1. IBUPROFEN [Suspect]
     Dosage: ORAL
     Route: 048
  2. VENLAFAXINE HYDROCHLORIDE [Suspect]
     Dosage: ORAL
     Route: 048
  3. IBUPROFEN [Concomitant]
  4. ABILIFY [Suspect]
     Dosage: ORAL
     Route: 048
  5. VENLAFAXINE HYDROCHLORIDE [Concomitant]
  6. CLOZAPINE [Suspect]
     Dosage: ORAL
     Route: 048
  7. ABILIFY [Concomitant]
  8. CLOZAPINE [Concomitant]

REACTIONS (2)
  - DRUG LEVEL INCREASED [None]
  - INTENTIONAL OVERDOSE [None]
